FAERS Safety Report 4514534-2 (Version None)
Quarter: 2004Q4

REPORT INFORMATION
  Report Type: 
  Country: None (occurrence: None)
  Receive Date: 20041129
  Receipt Date: 20041119
  Transmission Date: 20050328
  Serious: Yes (Hospitalization)
  Sender: FDA-Public Use
  Company Number: STA-AE-04-MTX-588

PATIENT
  Age: 67 Year
  Sex: Female

DRUGS (2)
  1. METHOTREXATE [Suspect]
     Dosage: 20 MG1X PER 1 WK, ORAL
     Route: 048
  2. ENBREL [Suspect]
     Indication: RHEUMATOID ARTHRITIS
     Dosage: 25 MG 2X 1 PER 1 WK, SC; 25 MG 2X PER 1 WK
     Route: 058
     Dates: start: 20041011

REACTIONS (7)
  - CEREBRAL ISCHAEMIA [None]
  - CEREBROVASCULAR ACCIDENT [None]
  - HYPERKERATOSIS [None]
  - MICROLITHIASIS [None]
  - PYELONEPHRITIS CHRONIC [None]
  - RENAL FAILURE [None]
  - URINARY TRACT INFECTION PSEUDOMONAL [None]
